FAERS Safety Report 14226372 (Version 1)
Quarter: 2017Q4

REPORT INFORMATION
  Report Type: Spontaneous
  Country: CA (occurrence: CA)
  Receive Date: 20171127
  Receipt Date: 20171127
  Transmission Date: 20180321
  Serious: Yes (Other)
  Sender: FDA-Public Use
  Company Number: CA-INGENUS PHARMACEUTICALS, LLC-INF201711-000575

PATIENT
  Age: 86 Year
  Sex: Male

DRUGS (6)
  1. CLOBETASOL [Suspect]
     Active Substance: CLOBETASOL
     Indication: PEMPHIGOID
     Route: 061
  2. PREDNISONE. [Suspect]
     Active Substance: PREDNISONE
  3. PREDNISONE. [Suspect]
     Active Substance: PREDNISONE
  4. PREDNISONE. [Suspect]
     Active Substance: PREDNISONE
     Indication: PEMPHIGOID
  5. PREDNISONE. [Suspect]
     Active Substance: PREDNISONE
  6. MYCOPHENOLATE MOFETIL. [Concomitant]
     Active Substance: MYCOPHENOLATE MOFETIL
     Indication: PEMPHIGOID

REACTIONS (2)
  - Kaposi^s sarcoma [Unknown]
  - Product use in unapproved indication [Unknown]
